FAERS Safety Report 7160193-2 (Version None)
Quarter: 2010Q4

REPORT INFORMATION
  Report Type: 
  Country: None (occurrence: None)
  Receive Date: 20101214
  Receipt Date: 20091130
  Transmission Date: 20110411
  Serious: No
  Sender: FDA-Public Use
  Company Number: US-AMGEN-KDL377429

PATIENT

DRUGS (2)
  1. ENBREL [Suspect]
     Indication: PRODUCT USED FOR UNKNOWN INDICATION
  2. ENBREL [Suspect]
     Indication: PSORIASIS

REACTIONS (1)
  - THERAPEUTIC RESPONSE DECREASED [None]
